FAERS Safety Report 6436920-6 (Version None)
Quarter: 2009Q4

REPORT INFORMATION
  Report Type: 
  Country: None (occurrence: None)
  Receive Date: 20091111
  Receipt Date: 20091029
  Transmission Date: 20100525
  Serious: Yes (Hospitalization)
  Sender: FDA-Public Use
  Company Number: PHHY2009JP47500

PATIENT
  Age: 66 Year
  Sex: Female

DRUGS (3)
  1. DIOVAN HCT [Suspect]
     Indication: HYPERTENSION
     Dosage: 1 DF
     Route: 048
     Dates: start: 20090313
  2. CRESTOR [Concomitant]
     Dosage: UNK
     Route: 048
     Dates: start: 20090130
  3. NORVASC [Concomitant]
     Dosage: 5 MG
     Route: 048
     Dates: start: 20090130

REACTIONS (1)
  - GASTROINTESTINAL CARCINOMA [None]
